FAERS Safety Report 21463603 (Version 1)
Quarter: 2022Q4

REPORT INFORMATION
  Report Type: Spontaneous
  Country: US (occurrence: US)
  Receive Date: 20221017
  Receipt Date: 20221017
  Transmission Date: 20230113
  Serious: Yes (Other)
  Sender: FDA-Public Use
  Company Number: US-SUN PHARMACEUTICAL INDUSTRIES LTD-2022R1-359108

PATIENT
  Age: 87 Year
  Sex: Male

DRUGS (5)
  1. LOTEPREDNOL [Suspect]
     Active Substance: LOTEPREDNOL
     Dosage: UNK, FOUR TIMES DAILY
     Route: 061
  2. CIPROFLOXACIN [Suspect]
     Active Substance: CIPROFLOXACIN
     Indication: Scleritis
     Dosage: 500 MILLIGRAM, BID
     Route: 048
  3. CYCLOPENTOLATE [Suspect]
     Active Substance: CYCLOPENTOLATE
     Indication: Pseudomonas infection
     Dosage: UNK, BID
     Route: 061
  4. MOXIFLOXACIN [Suspect]
     Active Substance: MOXIFLOXACIN
     Indication: Pseudomonas infection
     Dosage: UNK, HOURLY
     Route: 061
  5. TOBRAMYCIN [Suspect]
     Active Substance: TOBRAMYCIN
     Indication: Pseudomonas infection
     Dosage: 15 MG/ML HOURLY
     Route: 061

REACTIONS (2)
  - Disease progression [Unknown]
  - Toxicity to various agents [Unknown]
